FAERS Safety Report 19751102 (Version 1)
Quarter: 2021Q3

REPORT INFORMATION
  Report Type: Spontaneous
  Country: SG (occurrence: SG)
  Receive Date: 20210826
  Receipt Date: 20210826
  Transmission Date: 20211014
  Serious: Yes (Other)
  Sender: FDA-Public Use
  Company Number: SG-ALLERGAN-2129601US

PATIENT
  Sex: Female

DRUGS (1)
  1. MEMANTINE HCL ? BP [Suspect]
     Active Substance: MEMANTINE
     Indication: PRODUCT USED FOR UNKNOWN INDICATION
     Dosage: UNK

REACTIONS (2)
  - Agitation [Unknown]
  - Blood pressure increased [Unknown]
